FAERS Safety Report 18986828 (Version 1)
Quarter: 2021Q1

REPORT INFORMATION
  Report Type: Spontaneous
  Country: DE (occurrence: DE)
  Receive Date: 20210309
  Receipt Date: 20210309
  Transmission Date: 20210420
  Serious: Yes (Hospitalization)
  Sender: FDA-Public Use
  Company Number: DE-TEVA-2021-DE-1887297

PATIENT
  Age: 64 Year
  Sex: Female

DRUGS (12)
  1. HYDROCHLOROTHIAZID/RAMIPRIL [Suspect]
     Active Substance: HYDROCHLOROTHIAZIDE\RAMIPRIL
     Dosage: 1 DOSAGE FORMS DAILY; 25 | 5 MG, 1?0?0?0
  2. BRIMONIDINE [Concomitant]
     Active Substance: BRIMONIDINE TARTRATE
     Dosage: 2 DOSAGE FORMS DAILY; 1?0?1?0
     Route: 047
  3. RAMIPRIL. [Concomitant]
     Active Substance: RAMIPRIL
     Dosage: 5 MILLIGRAM DAILY; 0?0?0?1
  4. METAMIZOL [Concomitant]
     Active Substance: METAMIZOLE SODIUM
     Dosage: 500 MG, NEEDS, TABLETS
  5. TORASEMID [Suspect]
     Active Substance: TORSEMIDE
     Dosage: 5 MILLIGRAM DAILY; 1?0?0?0
  6. RIVAROXABAN [Suspect]
     Active Substance: RIVAROXABAN
     Dosage: 20 MILLIGRAM DAILY; 1?0?0?0
  7. PANTOPRAZOL [Concomitant]
     Active Substance: PANTOPRAZOLE SODIUM
     Dosage: 80 MILLIGRAM DAILY; 1?0?1?0
  8. AMLODIPIN [Concomitant]
     Active Substance: AMLODIPINE BESYLATE
     Dosage: .5 DOSAGE FORMS DAILY; 5 MG, 0?0?0?0.5
  9. IBUPROFEN. [Suspect]
     Active Substance: IBUPROFEN
     Dosage: 200 MG, AS NEEDED
  10. TRAMADOL. [Suspect]
     Active Substance: TRAMADOL
     Dosage: 100 MG, AS NEEDED, SUSTAINED?RELEASE TABLETS
  11. ATORVASTATIN [Concomitant]
     Active Substance: ATORVASTATIN
     Dosage: 40 MILLIGRAM DAILY; 0?0?0?1
  12. ACETYLSALICYLSAURE [Concomitant]
     Active Substance: ASPIRIN
     Dosage: 100 MILLIGRAM DAILY; 1?0?0?0

REACTIONS (6)
  - Vomiting [Recovering/Resolving]
  - Nausea [Recovering/Resolving]
  - Haematochezia [Recovering/Resolving]
  - Electrolyte imbalance [Recovering/Resolving]
  - Abdominal pain upper [Recovering/Resolving]
  - Haematemesis [Recovering/Resolving]
